FAERS Safety Report 9947467 (Version 1)
Quarter: 2014Q1

REPORT INFORMATION
  Report Type: Report from Study
  Country: US (occurrence: US)
  Receive Date: 20140303
  Receipt Date: 20140303
  Transmission Date: 20141002
  Serious: No
  Sender: FDA-Public Use
  Company Number: US-ABBVIE-13P-163-1056297-00

PATIENT
  Age: 53 Year
  Sex: Female
  Weight: 83.08 kg

DRUGS (7)
  1. HUMIRA [Suspect]
     Indication: RHEUMATOID ARTHRITIS
     Route: 058
     Dates: start: 201211, end: 201302
  2. SYNTHROID [Concomitant]
     Indication: HYPOTHYROIDISM
  3. TRIAMTERENE/HCTZ [Concomitant]
     Indication: FLUID RETENTION
  4. LEXAPRO [Concomitant]
     Indication: DEPRESSION
  5. VICODIN [Concomitant]
     Indication: PAIN
  6. LORAZEPAM [Concomitant]
     Indication: ANXIETY
  7. PRILOSEC [Concomitant]
     Indication: GASTROOESOPHAGEAL REFLUX DISEASE

REACTIONS (1)
  - Rash macular [Not Recovered/Not Resolved]
